FAERS Safety Report 25503763 (Version 1)
Quarter: 2025Q2

REPORT INFORMATION
  Report Type: Spontaneous
  Country: US (occurrence: None)
  Receive Date: 20250629
  Receipt Date: 20250629
  Transmission Date: 20250717
  Serious: Yes (Death)
  Sender: FDA-CTU
  Company Number: None

PATIENT
  Age: 10 Month
  Sex: Male
  Weight: 7.65 kg

DRUGS (4)
  1. CEFDINIR [Suspect]
     Active Substance: CEFDINIR
     Indication: Ear infection
     Dosage: OTHER QUANTITY : 20 ML;?FREQUENCY : DAILY;?
     Route: 048
  2. CEFDINIR [Suspect]
     Active Substance: CEFDINIR
     Indication: Eye infection
  3. VITAMINS [Concomitant]
     Active Substance: VITAMINS
  4. MAGNESIUM [Concomitant]
     Active Substance: MAGNESIUM

REACTIONS (3)
  - Hypersomnia [None]
  - Hypophagia [None]
  - Sudden death [None]

NARRATIVE: CASE EVENT DATE: 20250419
